FAERS Safety Report 11917516 (Version 2)
Quarter: 2016Q1

REPORT INFORMATION
  Report Type: Spontaneous
  Country: KW (occurrence: KW)
  Receive Date: 20160114
  Receipt Date: 20160115
  Transmission Date: 20160526
  Serious: Yes (Other)
  Sender: FDA-Public Use
  Company Number: KW-BAYER-2016-003888

PATIENT
  Sex: Female

DRUGS (11)
  1. ACETYLSALICYLIC ACID (} 100 MG) [Suspect]
     Active Substance: ASPIRIN
  2. METFORMIN [Concomitant]
     Active Substance: METFORMIN HYDROCHLORIDE
  3. ELTROXIN [Concomitant]
     Active Substance: LEVOTHYROXINE
  4. IRON [Concomitant]
     Active Substance: IRON
  5. IMMUNOGLOBULIN [Concomitant]
     Active Substance: HUMAN IMMUNOGLOBULIN G
  6. PRIMOLUT DEPOT [Suspect]
     Active Substance: HYDROXYPROGESTERONE CAPROATE
     Dosage: 500 MG, WEEKLY
  7. CLEXANE [Concomitant]
     Active Substance: ENOXAPARIN SODIUM
  8. DYDROGESTERONE [Concomitant]
     Active Substance: DYDROGESTERONE
  9. DEXAMETHASONE. [Concomitant]
     Active Substance: DEXAMETHASONE
  10. FOLIC ACID. [Concomitant]
     Active Substance: FOLIC ACID
  11. PROGESTERONE. [Concomitant]
     Active Substance: PROGESTERONE

REACTIONS (6)
  - Premature delivery [None]
  - Haemorrhage in pregnancy [None]
  - Foetal growth restriction [None]
  - Placenta praevia [None]
  - Maternal exposure during pregnancy [None]
  - Cholestasis of pregnancy [None]
